FAERS Safety Report 5275672-2 (Version None)
Quarter: 2007Q1

REPORT INFORMATION
  Report Type: 
  Country: None (occurrence: None)
  Receive Date: 20070326
  Receipt Date: 20070316
  Transmission Date: 20070707
  Serious: Yes (Hospitalization)
  Sender: FDA-Public Use
  Company Number: 2007AP01406

PATIENT
  Age: 15212 Day
  Sex: Female
  Weight: 56 kg

DRUGS (2)
  1. XYLOCAINE [Suspect]
     Indication: SKIN TEST
     Route: 023
     Dates: start: 20070227, end: 20070227
  2. XYLOCAINE [Suspect]
     Indication: INFILTRATION ANAESTHESIA
     Route: 023
     Dates: start: 20070227, end: 20070227

REACTIONS (2)
  - ANAPHYLACTIC REACTION [None]
  - SUPRAVENTRICULAR TACHYCARDIA [None]
